FAERS Safety Report 4565985-1 (Version None)
Quarter: 2005Q1

REPORT INFORMATION
  Report Type: 
  Country: None (occurrence: None)
  Receive Date: 20050131
  Receipt Date: 20030407
  Transmission Date: 20050727
  Serious: Yes (Hospitalization, Disabling)
  Sender: FDA-Public Use
  Company Number: US-MERCK-0304USA00845

PATIENT
  Age: 26 Year
  Sex: Male
  Weight: 91 kg

DRUGS (3)
  1. VIOXX [Suspect]
     Indication: BACK PAIN
     Route: 048
     Dates: start: 20000712, end: 20010921
  2. VIOXX [Suspect]
     Indication: ARTHRALGIA
     Route: 048
     Dates: start: 20000712, end: 20010921
  3. ATENOLOL [Suspect]
     Indication: HYPERTENSION
     Route: 065
     Dates: end: 20000908

REACTIONS (19)
  - ANXIETY [None]
  - AUTOIMMUNE THYROIDITIS [None]
  - CONTUSION [None]
  - CONVULSION [None]
  - DYSPEPSIA [None]
  - EMOTIONAL DISTRESS [None]
  - EXOSTOSIS [None]
  - HYPERTENSION [None]
  - JOINT SWELLING [None]
  - MIGRAINE [None]
  - MORTON'S NEUROMA [None]
  - NAUSEA [None]
  - NEUROMA [None]
  - OEDEMA PERIPHERAL [None]
  - OSTEOARTHRITIS [None]
  - SINUS CONGESTION [None]
  - SYNCOPE [None]
  - TREMOR [None]
  - VOMITING [None]
